FAERS Safety Report 8168277-7 (Version None)
Quarter: 2012Q1

REPORT INFORMATION
  Report Type: 
  Country: None (occurrence: None)
  Receive Date: 20120227
  Receipt Date: 20120222
  Transmission Date: 20120608
  Serious: Yes (Other)
  Sender: FDA-Public Use
  Company Number: US-PFIZER INC-2012010876

PATIENT
  Sex: Male
  Weight: 147 kg

DRUGS (4)
  1. PROMETHAZINE [Concomitant]
     Indication: NAUSEA
     Dosage: AN UNKNOWN DOSE FOUR TIMES A DAY AS NEEDED
  2. ASPIRIN [Concomitant]
     Dosage: 81 MG, UNK
  3. CHANTIX [Suspect]
     Indication: SMOKING CESSATION THERAPY
     Dosage: 0.5 MG, DAILY
     Route: 048
     Dates: start: 20120107, end: 20120112
  4. PRILOSEC [Concomitant]
     Indication: GASTROOESOPHAGEAL REFLUX DISEASE
     Dosage: 20 MG, 2X/DAY

REACTIONS (6)
  - NERVOUSNESS [None]
  - FEELING ABNORMAL [None]
  - ANXIETY [None]
  - ABNORMAL DREAMS [None]
  - HEADACHE [None]
  - AGITATION [None]
